FAERS Safety Report 5234817-0 (Version None)
Quarter: 2007Q1

REPORT INFORMATION
  Report Type: 
  Country: None (occurrence: None)
  Receive Date: 20070209
  Receipt Date: 20070205
  Transmission Date: 20070707
  Serious: Yes (Death, Hospitalization)
  Sender: FDA-Public Use
  Company Number: NO-NOVOPROD-260607

PATIENT
  Sex: Female
  Weight: 65 kg

DRUGS (6)
  1. NOVOSEVEN [Suspect]
     Indication: TRAUMATIC HAEMORRHAGE
     Dosage: 2 DOSES
     Route: 042
     Dates: start: 20070204, end: 20070204
  2. CEFALOTIN [Concomitant]
     Indication: PROPHYLAXIS
     Dosage: 2 G, UNK
     Route: 042
     Dates: start: 20070204, end: 20070204
  3. EFEDRIN [Concomitant]
     Indication: HYPOTENSION
     Dosage: 10 MG, UNK
     Route: 042
     Dates: start: 20070204, end: 20070204
  4. HYDROCORTISON                      /00028601/ [Concomitant]
     Indication: BLOOD GLUCOSE DECREASED
     Dosage: 205 MG, UNK
     Route: 042
     Dates: start: 20070204, end: 20070204
  5. ADRENALIN                          /00003901/ [Concomitant]
     Indication: VASODILATATION
     Dosage: 10 MG, UNK
     Route: 042
     Dates: start: 20070204, end: 20070204
  6. ADRENALIN                          /00003901/ [Concomitant]
     Indication: CARDIOMYOPATHY
     Dosage: .3 MG, UNK
     Dates: start: 20070204, end: 20070204

REACTIONS (1)
  - DEATH [None]
